FAERS Safety Report 8915661 (Version 2)
Quarter: 2012Q4

REPORT INFORMATION
  Report Type: Report from Study
  Country: CZ (occurrence: CZ)
  Receive Date: 20121119
  Receipt Date: 20121130
  Transmission Date: 20130627
  Serious: Yes (Hospitalization)
  Sender: FDA-Public Use
  Company Number: CZ-JNJFOC-20121107415

PATIENT
  Age: 62 Year
  Sex: Female

DRUGS (6)
  1. INFLIXIMAB, RECOMBINANT [Suspect]
     Indication: RHEUMATOID ARTHRITIS
     Route: 042
     Dates: start: 20120510, end: 20120621
  2. FORADIL [Concomitant]
  3. SPIRIVA [Concomitant]
  4. LUSOPRESS [Concomitant]
  5. LEFLUNOMID [Concomitant]
  6. DHC [Concomitant]

REACTIONS (1)
  - Respiratory failure [Recovering/Resolving]
